FAERS Safety Report 10414011 (Version 3)
Quarter: 2014Q4

REPORT INFORMATION
  Report Type: Spontaneous
  Country: FR (occurrence: None)
  Receive Date: 20140825
  Receipt Date: 20141021
  Transmission Date: 20150528
  Serious: Yes (Other)
  Sender: FDA-Public Use
  Company Number: NGX_01858_2013

PATIENT
  Age: 25 Year
  Sex: Female
  Weight: 98 kg

DRUGS (6)
  1. LIDOCAINE. [Concomitant]
     Active Substance: LIDOCAINE
  2. TRAMADOL [Concomitant]
     Active Substance: TRAMADOL
  3. TARDYFERON [Concomitant]
     Active Substance: FERROUS SULFATE\FOLIC ACID
  4. ANTICOAGULANT TREATMENT [Concomitant]
  5. QUTENZA [Suspect]
     Active Substance: CAPSAICIN
     Indication: NEURALGIA
     Dosage: CUTANEOUS PATCH
     Route: 062
     Dates: start: 20130605, end: 20130605
  6. ANALGESICS [Concomitant]
     Active Substance: UNSPECIFIED INGREDIENT

REACTIONS (7)
  - Application site pain [None]
  - Caesarean section [None]
  - Placental disorder [None]
  - Sensory disturbance [None]
  - Maternal exposure during pregnancy [None]
  - Application site pruritus [None]
  - Premature delivery [None]

NARRATIVE: CASE EVENT DATE: 20130605
